FAERS Safety Report 21270775 (Version 1)
Quarter: 2022Q3

REPORT INFORMATION
  Report Type: Spontaneous
  Country: KR (occurrence: KR)
  Receive Date: 20220830
  Receipt Date: 20220830
  Transmission Date: 20221027
  Serious: Yes (Other)
  Sender: FDA-Public Use
  Company Number: KR-ELI_LILLY_AND_COMPANY-KR202208011358

PATIENT
  Age: 82 Year
  Sex: Female

DRUGS (4)
  1. CYMBALTA [Suspect]
     Active Substance: DULOXETINE HYDROCHLORIDE
     Indication: Intervertebral disc disorder
     Dosage: 30 MG, DAILY
     Route: 065
     Dates: start: 20191227
  2. BERAPROST SODIUM [Suspect]
     Active Substance: BERAPROST SODIUM
     Indication: Intervertebral disc disorder
     Dosage: 1 DOSAGE FORM, DAILY
     Route: 065
     Dates: start: 20191227
  3. CELECOXIB [Suspect]
     Active Substance: CELECOXIB
     Indication: Intervertebral disc disorder
     Dosage: 1 DOSAGE FORM, DAILY
     Route: 065
     Dates: start: 20191227
  4. PREGABALIN [Suspect]
     Active Substance: PREGABALIN
     Indication: Intervertebral disc disorder
     Dosage: 1 DOSAGE FORM, DAILY
     Route: 065
     Dates: start: 20191227

REACTIONS (3)
  - Paralysis [Unknown]
  - Vomiting [Unknown]
  - Off label use [Unknown]

NARRATIVE: CASE EVENT DATE: 20191227
